FAERS Safety Report 5601121-8 (Version None)
Quarter: 2008Q1

REPORT INFORMATION
  Report Type: 
  Country: None (occurrence: None)
  Receive Date: 20080124
  Receipt Date: 20080111
  Transmission Date: 20080703
  Serious: Yes (Other)
  Sender: FDA-Public Use
  Company Number: FR-AMGEN-US236933

PATIENT
  Sex: Female
  Weight: 52 kg

DRUGS (3)
  1. ENBREL [Suspect]
     Indication: RHEUMATOID ARTHRITIS
     Route: 058
     Dates: start: 20060323, end: 20070702
  2. CORTANCYL [Concomitant]
     Route: 048
     Dates: start: 20041105
  3. METHOTREXATE [Concomitant]
     Dosage: 15 MG TOTAL WEEKLY
     Route: 030
     Dates: start: 20041105

REACTIONS (1)
  - LUPUS-LIKE SYNDROME [None]
